FAERS Safety Report 7146409-7 (Version None)
Quarter: 2010Q4

REPORT INFORMATION
  Report Type: 
  Country: None (occurrence: None)
  Receive Date: 20101208
  Receipt Date: 20100623
  Transmission Date: 20110411
  Serious: No
  Sender: FDA-Public Use
  Company Number: US-BRISTOL-MYERS SQUIBB COMPANY-15163389

PATIENT
  Age: 61 Year
  Sex: Female

DRUGS (4)
  1. PRAVACHOL [Suspect]
  2. VYTORIN [Suspect]
  3. ELAVIL [Suspect]
  4. TRILEPTAL [Suspect]

REACTIONS (1)
  - ADVERSE EVENT [None]
